FAERS Safety Report 8857192 (Version 1)
Quarter: 2012Q4

REPORT INFORMATION
  Report Type: 
  Country: US (occurrence: US)
  Receive Date: 20121024
  Receipt Date: 20121024
  Transmission Date: 20130627
  Serious: Yes (Other)
  Sender: FDA-Public Use
  Company Number: US-WATSON-2012-17958

PATIENT
  Age: 6 Year
  Sex: Female
  Weight: 20.4 kg

DRUGS (2)
  1. GELNIQUE [Suspect]
     Indication: DYSURIA
     Dosage: 1-2 depressions daily
     Route: 061
     Dates: start: 20120917, end: 20121009
  2. KEFLEX                             /00145501/ [Concomitant]
     Indication: PRODUCT USED FOR UNKNOWN INDICATION
     Dosage: 250mg, 3 times daily
     Route: 048

REACTIONS (4)
  - Hallucination [Recovered/Resolved]
  - Confusional state [Recovered/Resolved]
  - Hallucination, visual [None]
  - Abnormal sleep-related event [None]
